FAERS Safety Report 9675642 (Version 2)
Quarter: 2013Q4

REPORT INFORMATION
  Report Type: Spontaneous
  Country: NL (occurrence: NL)
  Receive Date: 20131107
  Receipt Date: 20131112
  Transmission Date: 20140711
  Serious: Yes (Disabling)
  Sender: FDA-Public Use
  Company Number: NL-ELI_LILLY_AND_COMPANY-NL201310010672

PATIENT
  Sex: Female
  Weight: 75 kg

DRUGS (3)
  1. PROZAC [Suspect]
     Indication: PRODUCT USED FOR UNKNOWN INDICATION
     Dosage: 20 MG, UNKNOWN
     Route: 048
     Dates: start: 201105
  2. PROZAC [Suspect]
     Dosage: 40 MG, UNKNOWN
     Route: 048
     Dates: end: 201108
  3. MOVICOLON [Concomitant]
     Indication: PRODUCT USED FOR UNKNOWN INDICATION
     Dosage: 1 DF, QD
     Route: 065
     Dates: start: 2008

REACTIONS (1)
  - Arthritis [Not Recovered/Not Resolved]
